FAERS Safety Report 4772036-2 (Version None)
Quarter: 2005Q3

REPORT INFORMATION
  Report Type: 
  Country: None (occurrence: None)
  Receive Date: 20050916
  Receipt Date: 20050907
  Transmission Date: 20060218
  Serious: Yes (Hospitalization, Other)
  Sender: FDA-Public Use
  Company Number: US-ABBOTT-05P-163-0310503-00

PATIENT
  Age: 63 Year
  Sex: Female

DRUGS (6)
  1. HUMIRA [Suspect]
     Indication: RHEUMATOID ARTHRITIS
     Route: 058
     Dates: start: 20050511, end: 20050621
  2. SERETIDE MITE [Concomitant]
     Indication: ASTHMA
     Dosage: 250/50
     Route: 055
  3. ALBUTEROL SULFATE HFA [Concomitant]
     Indication: DRUG USE FOR UNKNOWN INDICATION
     Route: 055
  4. TUSSIONEX SUSPENSION [Concomitant]
     Indication: DRUG USE FOR UNKNOWN INDICATION
  5. PROVELLA-14 [Concomitant]
     Indication: HORMONE REPLACEMENT THERAPY
     Dosage: 0.45/1.25
     Dates: end: 20050601
  6. CYANOCOBALAMIN [Concomitant]
     Indication: DRUG USE FOR UNKNOWN INDICATION
     Route: 050

REACTIONS (11)
  - ABDOMINAL OBESITY [None]
  - DEEP VEIN THROMBOSIS [None]
  - LABORATORY TEST [None]
  - PNEUMONITIS [None]
  - PULMONARY EMBOLISM [None]
  - PULMONARY FIBROSIS [None]
  - RALES [None]
  - RED BLOOD CELL SEDIMENTATION RATE INCREASED [None]
  - RHONCHI [None]
  - TACHYCARDIA [None]
  - WHITE BLOOD CELL COUNT INCREASED [None]
